FAERS Safety Report 18816374 (Version 1)
Quarter: 2021Q1

REPORT INFORMATION
  Report Type: Spontaneous
  Country: US (occurrence: US)
  Receive Date: 20210201
  Receipt Date: 20210201
  Transmission Date: 20210419
  Serious: Yes (Hospitalization)
  Sender: FDA-Public Use
  Company Number: None

PATIENT
  Age: 34 Year
  Sex: Female

DRUGS (6)
  1. FOLIC ACID. [Concomitant]
     Active Substance: FOLIC ACID
  2. MEDROXYPR AC [Concomitant]
  3. HYDREA [Concomitant]
     Active Substance: HYDROXYUREA
  4. MORPHINE SUL ER [Concomitant]
  5. DEFERASIROX. [Suspect]
     Active Substance: DEFERASIROX
     Indication: LABORATORY TEST ABNORMAL
     Route: 048
  6. CYMBALTA [Concomitant]
     Active Substance: DULOXETINE HYDROCHLORIDE

REACTIONS (1)
  - Hospitalisation [None]

NARRATIVE: CASE EVENT DATE: 20210122
